FAERS Safety Report 14970660 (Version 3)
Quarter: 2018Q3

REPORT INFORMATION
  Report Type: Report from Study
  Country: US (occurrence: US)
  Receive Date: 20180604
  Receipt Date: 20180820
  Transmission Date: 20181010
  Serious: Yes (Life-Threatening, Other)
  Sender: FDA-Public Use
  Company Number: US-TESARO, INC-US-2018TSO01335

PATIENT
  Sex: Female
  Weight: 46.26 kg

DRUGS (6)
  1. ZEJULA [Suspect]
     Active Substance: NIRAPARIB
     Dosage: 200 MG, QD
     Route: 048
     Dates: start: 20180523
  2. ZEJULA [Suspect]
     Active Substance: NIRAPARIB
     Dosage: 200 MG, QD
     Route: 048
  3. ZEJULA [Suspect]
     Active Substance: NIRAPARIB
     Dosage: 200 MG, UNK
     Route: 048
  4. ASPIRIN                            /00002701/ [Suspect]
     Active Substance: ASPIRIN
     Indication: PLATELET COUNT INCREASED
     Dosage: UNK
     Route: 065
  5. ZEJULA [Suspect]
     Active Substance: NIRAPARIB
     Dosage: 300 MG, QD
     Route: 048
     Dates: end: 20180502
  6. ZEJULA [Suspect]
     Active Substance: NIRAPARIB
     Indication: OVARIAN CANCER
     Dosage: 300 MG, QD
     Route: 048
     Dates: start: 201801, end: 20180228

REACTIONS (14)
  - Transfusion reaction [Unknown]
  - Haemoglobin decreased [Recovering/Resolving]
  - Fear [Unknown]
  - Haematocrit decreased [Not Recovered/Not Resolved]
  - Anaemia [Recovering/Resolving]
  - Platelet count decreased [Recovering/Resolving]
  - Nausea [Not Recovered/Not Resolved]
  - Platelet count increased [Recovered/Resolved]
  - Eastern Cooperative Oncology Group performance status worsened [Unknown]
  - Weight decreased [Not Recovered/Not Resolved]
  - Feeding disorder [Not Recovered/Not Resolved]
  - Feeling abnormal [Unknown]
  - Unevaluable event [Not Recovered/Not Resolved]
  - Adverse drug reaction [Unknown]
